FAERS Safety Report 4566945-7 (Version None)
Quarter: 2005Q1

REPORT INFORMATION
  Report Type: 
  Country: None (occurrence: None)
  Receive Date: 20050201
  Receipt Date: 20030421
  Transmission Date: 20050727
  Serious: Yes (Hospitalization, Other)
  Sender: FDA-Public Use
  Company Number: US-BRISTOL-MYERS SQUIBB COMPANY-12258133

PATIENT
  Age: 37 Year
  Sex: Female

DRUGS (15)
  1. STADOL [Suspect]
  2. CLARITIN-D [Concomitant]
  3. MOTRIN [Concomitant]
  4. TUSSIN DM [Concomitant]
  5. PHENERGAN [Concomitant]
     Indication: HEADACHE
     Route: 030
  6. ATIVAN [Concomitant]
     Indication: HEADACHE
  7. PAXIL [Concomitant]
     Indication: HEADACHE
  8. ZOFRAN [Concomitant]
     Indication: HEADACHE
     Dosage: DOSING: 2 CC
     Route: 030
  9. IMITREX [Concomitant]
  10. THORAZINE [Concomitant]
  11. KADIAN [Concomitant]
  12. PROZAC [Concomitant]
  13. INDERAL [Concomitant]
  14. TORADOL [Concomitant]
  15. FIORINAL [Concomitant]

REACTIONS (2)
  - DEPENDENCE [None]
  - DEPRESSION [None]
